FAERS Safety Report 18640387 (Version 1)
Quarter: 2020Q4

REPORT INFORMATION
  Report Type: Spontaneous
  Country: US (occurrence: US)
  Receive Date: 20201221
  Receipt Date: 20201221
  Transmission Date: 20210114
  Serious: Yes (Other)
  Sender: FDA-Public Use
  Company Number: US-ABBVIE-20K-163-3696216-00

PATIENT
  Sex: Female

DRUGS (1)
  1. HUMIRA [Suspect]
     Active Substance: ADALIMUMAB
     Indication: RHEUMATOID ARTHRITIS
     Route: 058
     Dates: start: 2019

REACTIONS (9)
  - Road traffic accident [Unknown]
  - Arthralgia [Unknown]
  - Fall [Unknown]
  - Concussion [Unknown]
  - Facial bones fracture [Unknown]
  - Upper limb fracture [Unknown]
  - Skull fracture [Unknown]
  - Ligament rupture [Unknown]
  - Arthritis [Unknown]

NARRATIVE: CASE EVENT DATE: 2020
